FAERS Safety Report 20534082 (Version 1)
Quarter: 2022Q1

REPORT INFORMATION
  Report Type: Spontaneous
  Country: FR (occurrence: FR)
  Receive Date: 20220301
  Receipt Date: 20220301
  Transmission Date: 20220423
  Serious: Yes (Congenital Anomaly, Other)
  Sender: FDA-Public Use
  Company Number: FR-ABBVIE-22K-056-4295734-00

PATIENT
  Sex: Male

DRUGS (4)
  1. VALPROATE SODIUM [Suspect]
     Active Substance: VALPROATE SODIUM
     Indication: Maternal exposure timing unspecified
     Route: 064
  2. VALPROATE SODIUM [Suspect]
     Active Substance: VALPROATE SODIUM
     Indication: Maternal exposure timing unspecified
     Route: 064
  3. FOLIC ACID [Concomitant]
     Active Substance: FOLIC ACID
     Indication: Maternal exposure timing unspecified
  4. LEVOTHYROXINE [Concomitant]
     Active Substance: LEVOTHYROXINE
     Indication: Maternal exposure timing unspecified

REACTIONS (45)
  - Dystonia [Unknown]
  - Hypertonia neonatal [Unknown]
  - Neonatal hypoacusis [Unknown]
  - Dysmorphism [Unknown]
  - Skull malformation [Unknown]
  - Prognathism [Unknown]
  - Congenital inguinal hernia [Unknown]
  - Joint laxity [Unknown]
  - Psychomotor skills impaired [Unknown]
  - Psychomotor retardation [Unknown]
  - Developmental delay [Unknown]
  - Congenital eye disorder [Unknown]
  - Mental disorder [Unknown]
  - Speech disorder developmental [Unknown]
  - Disturbance in attention [Unknown]
  - Limb malformation [Unknown]
  - Talipes [Unknown]
  - Hypotonia neonatal [Unknown]
  - Brain stem auditory evoked response abnormal [Unknown]
  - Enlarged cerebral perivascular spaces [Unknown]
  - Deafness neurosensory [Unknown]
  - Learning disorder [Unknown]
  - Dysgraphia [Unknown]
  - Dysmorphism [Unknown]
  - Plagiocephaly [Unknown]
  - Congenital torticollis [Unknown]
  - Behaviour disorder [Unknown]
  - Congenital myopia [Unknown]
  - Congenital astigmatism [Unknown]
  - Hydrocele [Unknown]
  - Talipes [Unknown]
  - Enuresis [Unknown]
  - Social avoidant behaviour [Unknown]
  - Sleep disorder [Unknown]
  - Anxiety [Unknown]
  - Gastric disorder [Unknown]
  - Irritability [Unknown]
  - Amygdalotomy [Unknown]
  - Adenoidectomy [Unknown]
  - Ear tube insertion [Unknown]
  - Scarlet fever [Unknown]
  - Oropharyngeal discomfort [Unknown]
  - Ear disorder [Unknown]
  - Nasal disorder [Unknown]
  - Foetal exposure during pregnancy [Unknown]
